FAERS Safety Report 8302560-7 (Version None)
Quarter: 2012Q2

REPORT INFORMATION
  Report Type: 
  Country: None (occurrence: None)
  Receive Date: 20120420
  Receipt Date: 20120411
  Transmission Date: 20120825
  Serious: Yes (Death)
  Sender: FDA-Public Use
  Company Number: JP-ROCHE-1051354

PATIENT
  Age: 47 Year
  Sex: Female

DRUGS (6)
  1. GLYCERIN [Concomitant]
     Dates: start: 20111229, end: 20111229
  2. ACTIVASE [Suspect]
     Indication: CEREBRAL INFARCTION
     Route: 042
     Dates: start: 20111228, end: 20111228
  3. RADICUT [Suspect]
     Indication: CEREBRAL INFARCTION
     Dates: start: 20111228, end: 20111231
  4. GLYCERIN [Concomitant]
     Dates: start: 20111230, end: 20111230
  5. GLYCEOL [Concomitant]
     Dates: start: 20111229, end: 20111229
  6. GASTER (JAPAN) [Concomitant]
     Dates: start: 20111228, end: 20111230

REACTIONS (1)
  - CEREBRAL INFARCTION [None]
